FAERS Safety Report 11417746 (Version 1)
Quarter: 2015Q3

REPORT INFORMATION
  Report Type: Report from Study
  Country: US (occurrence: US)
  Receive Date: 20150825
  Receipt Date: 20150825
  Transmission Date: 20151125
  Serious: Yes (Hospitalization, Other)
  Sender: FDA-Public Use
  Company Number: US-ABBVIE-15P-163-1447553-00

PATIENT
  Sex: Female

DRUGS (1)
  1. LUPRON DEPOT [Suspect]
     Active Substance: LEUPROLIDE ACETATE
     Indication: ENDOMETRIOSIS
     Route: 030
     Dates: start: 201105

REACTIONS (5)
  - Loss of employment [Unknown]
  - Endometriosis [Not Recovered/Not Resolved]
  - Surgery [Unknown]
  - Haemorrhage [Unknown]
  - Haemorrhage [Not Recovered/Not Resolved]
